FAERS Safety Report 5141317-5 (Version None)
Quarter: 2006Q4

REPORT INFORMATION
  Report Type: 
  Country: None (occurrence: None)
  Receive Date: 20061101
  Receipt Date: 20061024
  Transmission Date: 20070319
  Serious: Yes (Hospitalization)
  Sender: FDA-Public Use
  Company Number: PT-BRISTOL-MYERS SQUIBB COMPANY-13558549

PATIENT
  Age: 50 Year
  Sex: Female

DRUGS (2)
  1. TRAZODONE HCL [Suspect]
     Indication: SEASONAL AFFECTIVE DISORDER
     Route: 048
     Dates: start: 20060411, end: 20060826
  2. ESCITALOPRAM OXALATE [Concomitant]

REACTIONS (5)
  - ACHOLIA [None]
  - ANOREXIA [None]
  - ASTHENIA [None]
  - CHOLURIA [None]
  - HEPATITIS ACUTE [None]
